FAERS Safety Report 9971090 (Version 2)
Quarter: 2014Q1

REPORT INFORMATION
  Report Type: Report from Study
  Country: US (occurrence: US)
  Receive Date: 20140306
  Receipt Date: 20140306
  Transmission Date: 20141002
  Serious: No
  Sender: FDA-Public Use
  Company Number: US-ABBVIE-13P-163-1126419-00

PATIENT
  Age: 63 Year
  Sex: Female
  Weight: 68.1 kg

DRUGS (7)
  1. HUMIRA [Suspect]
     Indication: RHEUMATOID ARTHRITIS
     Dates: start: 20130701, end: 20130729
  2. HUMIRA [Suspect]
     Indication: ANKYLOSING SPONDYLITIS
  3. DIOVAN [Concomitant]
     Indication: HYPERTENSION
  4. NORVASC [Concomitant]
     Indication: HYPERTENSION
  5. ADVIL [Concomitant]
     Indication: ARTHRALGIA
  6. TYLENOL [Concomitant]
     Indication: ARTHRALGIA
  7. BAYER CHILDREN^S ASPIRIN [Concomitant]
     Indication: PRODUCT USED FOR UNKNOWN INDICATION

REACTIONS (9)
  - Respiratory tract congestion [Recovered/Resolved]
  - Increased upper airway secretion [Recovered/Resolved]
  - Feeling abnormal [Not Recovered/Not Resolved]
  - Sinus congestion [Recovered/Resolved]
  - Nasal congestion [Not Recovered/Not Resolved]
  - Neck pain [Not Recovered/Not Resolved]
  - Musculoskeletal stiffness [Not Recovered/Not Resolved]
  - Influenza like illness [Recovered/Resolved]
  - Back pain [Not Recovered/Not Resolved]
